FAERS Safety Report 14992259 (Version 1)
Quarter: 2018Q2

REPORT INFORMATION
  Report Type: Spontaneous
  Country: DE (occurrence: DE)
  Receive Date: 20180608
  Receipt Date: 20180608
  Transmission Date: 20180711
  Serious: Yes (Hospitalization)
  Sender: FDA-Public Use
  Company Number: DE-TEVA-2018-DE-903202

PATIENT
  Age: 84 Year
  Sex: Male
  Weight: 87 kg

DRUGS (7)
  1. METFORMIN [Concomitant]
     Active Substance: METFORMIN HYDROCHLORIDE
     Route: 048
  2. PHENPROCOUMON [Concomitant]
     Active Substance: PHENPROCOUMON
     Route: 048
  3. TORASEMIDE [Suspect]
     Active Substance: TORSEMIDE
     Route: 048
  4. PANTOPRAZOL [Concomitant]
     Active Substance: PANTOPRAZOLE SODIUM
     Route: 048
  5. GLIMEPIRID [Concomitant]
     Active Substance: GLIMEPIRIDE
     Route: 048
  6. SOLIFENACIN [Concomitant]
     Active Substance: SOLIFENACIN
     Route: 048
  7. KALIUMCHLORID [Concomitant]
     Route: 048

REACTIONS (3)
  - Hypertension [Unknown]
  - Bradycardia [Unknown]
  - Dizziness [Unknown]

NARRATIVE: CASE EVENT DATE: 20160112
